FAERS Safety Report 9723607 (Version 2)
Quarter: 2013Q4

REPORT INFORMATION
  Report Type: Report from Study
  Country: DE (occurrence: DE)
  Receive Date: 20131202
  Receipt Date: 20131217
  Transmission Date: 20140711
  Serious: Yes (Hospitalization)
  Sender: FDA-Public Use
  Company Number: DE-INCYTE CORPORATION-2013IN002791

PATIENT
  Sex: Male
  Weight: 72 kg

DRUGS (8)
  1. INCB018424 [Suspect]
     Indication: MYELOFIBROSIS
     Dosage: 5 MG, 2 DF, PER DAY
     Route: 048
     Dates: start: 20130508
  2. BLOOD TRANSFUSION, AUXILIARY PRODUCTS (NO INGREDIENTS/SUBSTANCES) [Concomitant]
  3. ERYTHROPOIETIN [Concomitant]
     Dosage: UNK
     Dates: start: 20130130
  4. PREDNISOLONE [Concomitant]
     Dosage: UNK
     Dates: start: 20130423, end: 20130716
  5. UNIMAX [Concomitant]
     Dosage: UNK
     Dates: start: 20080122
  6. MICARDIS [Concomitant]
     Dosage: UNK
     Dates: start: 20080122, end: 20131114
  7. NEBILET [Concomitant]
     Dosage: UNK
     Dates: start: 20080122
  8. EXJADE [Concomitant]
     Dosage: UNK
     Dates: start: 20130710

REACTIONS (1)
  - Pyrexia [Recovered/Resolved]
